FAERS Safety Report 7285501-3 (Version None)
Quarter: 2011Q1

REPORT INFORMATION
  Report Type: 
  Country: None (occurrence: None)
  Receive Date: 20110210
  Receipt Date: 20110207
  Transmission Date: 20110831
  Serious: Yes (Death)
  Sender: FDA-Public Use
  Company Number: US-PFIZER INC-2011011716

PATIENT
  Sex: Female

DRUGS (11)
  1. REVATIO [Suspect]
     Indication: PULMONARY HYPERTENSION
     Dosage: 20 MG, 3X/DAY
     Route: 048
     Dates: start: 20090504
  2. DILAUDID [Concomitant]
     Dosage: UNK
  3. MS CONTIN [Concomitant]
     Dosage: UNK
  4. VICODIN [Concomitant]
     Dosage: UNK
  5. FOSAMAX [Concomitant]
     Dosage: UNK
  6. PRILOSEC [Concomitant]
     Dosage: UNK
  7. ZOFRAN [Concomitant]
     Dosage: 4 MG, UNK
  8. ZOCOR [Concomitant]
     Dosage: UNK
  9. TREPROSTINIL SODIUM [Concomitant]
     Dosage: UNK
  10. DECADRON [Concomitant]
     Dosage: 2 MG, UNK
  11. CUPRIMINE [Concomitant]
     Dosage: UNK

REACTIONS (1)
  - NON-SMALL CELL LUNG CANCER [None]
